FAERS Safety Report 6993380-4 (Version None)
Quarter: 2010Q3

REPORT INFORMATION
  Report Type: 
  Country: None (occurrence: None)
  Receive Date: 20100917
  Receipt Date: 20100408
  Transmission Date: 20110219
  Serious: No
  Sender: FDA-Public Use
  Company Number: US-ASTRAZENECA-2010SE15512

PATIENT
  Age: 60 Year
  Sex: Female
  Weight: 127 kg

DRUGS (1)
  1. SEROQUEL [Suspect]
     Indication: SLEEP DISORDER
     Route: 048
     Dates: start: 20090101, end: 20100101

REACTIONS (3)
  - DRUG DOSE OMISSION [None]
  - FATIGUE [None]
  - SEDATION [None]
